FAERS Safety Report 9833066 (Version 1)
Quarter: 2014Q1

REPORT INFORMATION
  Report Type: Report from Study
  Country: US (occurrence: US)
  Receive Date: 20140121
  Receipt Date: 20140121
  Transmission Date: 20141002
  Serious: Yes (Hospitalization)
  Sender: FDA-Public Use
  Company Number: US-ABBVIE-14P-163-1188722-00

PATIENT
  Age: 57 Year
  Sex: Female
  Weight: 97.16 kg

DRUGS (22)
  1. HUMIRA [Suspect]
     Indication: RHEUMATOID ARTHRITIS
     Route: 058
     Dates: start: 201301, end: 201309
  2. HUMIRA [Suspect]
     Indication: OSTEOARTHRITIS
     Route: 058
     Dates: start: 20131227
  3. PLAVIX [Concomitant]
     Indication: ANTICOAGULANT THERAPY
  4. ENALAPRIL [Concomitant]
     Indication: HYPERTENSION
  5. DEXILANT [Concomitant]
     Indication: GASTROOESOPHAGEAL REFLUX DISEASE
  6. CYMBALTA [Concomitant]
     Indication: ANXIETY
  7. CYMBALTA [Concomitant]
     Indication: DEPRESSION
  8. OXYBUTYNIN CHLROIDE [Concomitant]
     Indication: INCONTINENCE
  9. ATORVASTATIN [Concomitant]
     Indication: BLOOD CHOLESTEROL INCREASED
  10. METFORMIN [Concomitant]
     Indication: DIABETES MELLITUS
  11. GABAPENTIN [Concomitant]
     Indication: NEUROPATHY PERIPHERAL
  12. METHOTREXATE [Concomitant]
     Indication: RHEUMATOID ARTHRITIS
  13. FOLIC ACID [Concomitant]
     Indication: RHEUMATOID ARTHRITIS
  14. VITAMIN D2 [Concomitant]
     Indication: VITAMIN SUPPLEMENTATION
  15. TRAMADOL [Concomitant]
     Indication: RHEUMATOID ARTHRITIS
  16. THEOPHYLLINE [Concomitant]
     Indication: ASTHMA
  17. MONTELUKAST SODIUM [Concomitant]
     Indication: ASTHMA
  18. VENTOLIN [Concomitant]
     Indication: PRODUCT USED FOR UNKNOWN INDICATION
     Dosage: INHALER PRN
  19. PREDNISONE [Concomitant]
     Indication: RHEUMATOID ARTHRITIS
  20. ALBUTEROL [Concomitant]
     Indication: ASTHMA
     Dosage: NEBULIZER - COMBINED WITH CROMOLYN
  21. CROMOLYN [Concomitant]
     Indication: ASTHMA
     Dosage: NEBULIZER - COMBINED WITH ALBUTEROL
  22. ZYRTEC [Concomitant]
     Indication: HYPERSENSITIVITY

REACTIONS (2)
  - Abdominal hernia [Recovered/Resolved]
  - Abdominal pain [Recovered/Resolved]
